FAERS Safety Report 10276292 (Version 1)
Quarter: 2014Q3

REPORT INFORMATION
  Report Type: Spontaneous
  Country: US (occurrence: None)
  Receive Date: 20140701
  Receipt Date: 20140701
  Transmission Date: 20150326
  Serious: No
  Sender: FDA-Public Use
  Company Number: None

PATIENT
  Age: 65 Year
  Sex: Male
  Weight: 84.9 kg

DRUGS (1)
  1. MOXIFLOXACIN [Suspect]
     Active Substance: MOXIFLOXACIN
     Indication: UPPER RESPIRATORY TRACT INFECTION
     Dosage: MG
     Route: 048
     Dates: start: 20140115, end: 20140126

REACTIONS (2)
  - Tendon rupture [None]
  - Pain in extremity [None]

NARRATIVE: CASE EVENT DATE: 20140126
